FAERS Safety Report 13345297 (Version 3)
Quarter: 2017Q2

REPORT INFORMATION
  Report Type: Spontaneous
  Country: US (occurrence: US)
  Receive Date: 20170317
  Receipt Date: 20170417
  Transmission Date: 20170830
  Serious: Yes (Death)
  Sender: FDA-Public Use
  Company Number: US-ROCHE-1907869

PATIENT
  Age: 74 Year
  Sex: Male

DRUGS (2)
  1. COTELLIC [Suspect]
     Active Substance: COBIMETINIB
     Indication: LUNG NEOPLASM MALIGNANT
     Route: 065
     Dates: start: 20170221, end: 20170228
  2. ZELBORAF [Suspect]
     Active Substance: VEMURAFENIB
     Indication: LUNG NEOPLASM MALIGNANT
     Route: 048
     Dates: start: 20170222, end: 20170302

REACTIONS (6)
  - Rhabdomyolysis [Fatal]
  - Respiratory failure [Fatal]
  - Acute kidney injury [Fatal]
  - Asthenia [Fatal]
  - Acute hepatic failure [Fatal]
  - Cardiomyopathy [Fatal]

NARRATIVE: CASE EVENT DATE: 20170301
